FAERS Safety Report 11218373 (Version 2)
Quarter: 2015Q3

REPORT INFORMATION
  Report Type: Spontaneous
  Country: TR (occurrence: None)
  Receive Date: 20150623
  Receipt Date: 20150701
  Transmission Date: 20151125
  Serious: Yes (Hospitalization, Other)
  Sender: FDA-Public Use
  Company Number: 2015EDG00025

PATIENT
  Age: 15 Year
  Sex: Female

DRUGS (1)
  1. FLUOXETINE (FLUOXETINE) UNKNOWN [Suspect]
     Active Substance: FLUOXETINE HYDROCHLORIDE
     Indication: ANXIETY
     Dosage: (20 MG X 3)

REACTIONS (6)
  - Electrocardiogram ST segment depression [None]
  - Sinus tachycardia [None]
  - Pulmonary haemosiderosis [None]
  - Toxicity to various agents [None]
  - Vomiting [None]
  - Loss of consciousness [None]
